FAERS Safety Report 9322325 (Version 2)
Quarter: 2013Q2

REPORT INFORMATION
  Report Type: Spontaneous
  Country: GB (occurrence: GB)
  Receive Date: 20130531
  Receipt Date: 20130619
  Transmission Date: 20140414
  Serious: Yes (Other)
  Sender: FDA-Public Use
  Company Number: GB-ABBOTT-13P-167-1096479-00

PATIENT
  Sex: Male

DRUGS (2)
  1. HUMIRA [Suspect]
     Indication: ANKYLOSING SPONDYLITIS
     Route: 058
  2. SERTRALINE [Concomitant]
     Indication: PRODUCT USED FOR UNKNOWN INDICATION

REACTIONS (10)
  - Device malfunction [Unknown]
  - Incorrect dose administered [Unknown]
  - Feeling cold [Unknown]
  - Hyperhidrosis [Unknown]
  - Migraine [Unknown]
  - Lacrimation increased [Unknown]
  - Road traffic accident [Unknown]
  - Device malfunction [Unknown]
  - Drug dose omission [Unknown]
  - Incorrect dose administered [Unknown]
